FAERS Safety Report 19640057 (Version 1)
Quarter: 2021Q3

REPORT INFORMATION
  Report Type: Spontaneous
  Country: JP (occurrence: JP)
  Receive Date: 20210730
  Receipt Date: 20210730
  Transmission Date: 20211014
  Serious: Yes (Hospitalization)
  Sender: FDA-Public Use
  Company Number: JP-MYLANLABS-2021M1046115

PATIENT
  Age: 36 Year
  Sex: Male
  Weight: 65 kg

DRUGS (6)
  1. LEVETIRACETAM. [Concomitant]
     Active Substance: LEVETIRACETAM
     Indication: EPILEPSY
     Route: 065
  2. PARACETAMOL [Suspect]
     Active Substance: ACETAMINOPHEN
     Indication: PYREXIA
     Dosage: 400 MILLIGRAM, 400MG PER DOSE
     Route: 065
  3. LOXOPROFEN [Suspect]
     Active Substance: LOXOPROFEN
     Indication: PYREXIA
     Dosage: 60 MILLIGRAM, 60MG PER DOSE
     Route: 065
  4. NAPROXEN. [Suspect]
     Active Substance: NAPROXEN
     Indication: PYREXIA
     Route: 065
  5. NIMUSTINE HYDROCHLORIDE [Concomitant]
     Active Substance: NIMUSTINE HYDROCHLORIDE
     Indication: ANAPLASTIC ASTROCYTOMA
     Route: 065
  6. CARBAMAZEPINE. [Concomitant]
     Active Substance: CARBAMAZEPINE
     Indication: EPILEPSY
     Route: 065

REACTIONS (1)
  - Drug ineffective [Unknown]
